APPROVED DRUG PRODUCT: LEUKERAN
Active Ingredient: CHLORAMBUCIL
Strength: 2MG
Dosage Form/Route: TABLET;ORAL
Application: N010669 | Product #002
Applicant: WAYLIS THERAPEUTICS LLC
Approved: Approved Prior to Jan 1, 1982 | RLD: Yes | RS: Yes | Type: RX